FAERS Safety Report 8544007-1 (Version None)
Quarter: 2012Q3

REPORT INFORMATION
  Report Type: 
  Country: None (occurrence: None)
  Receive Date: 20120727
  Receipt Date: 20120725
  Transmission Date: 20120928
  Serious: Yes (Other)
  Sender: FDA-Public Use
  Company Number: CL-PFIZER INC-2012138280

PATIENT
  Age: 69 Year
  Sex: Female

DRUGS (6)
  1. VARENICLINE TARTRATE [Suspect]
     Indication: SMOKING CESSATION THERAPY
     Dosage: 1 MG, 2X/DAY
     Route: 048
     Dates: start: 20120601, end: 20120101
  2. CLONAZEPAM [Concomitant]
     Indication: PANIC ATTACK
     Dosage: 0.5 MG, UNK
  3. VARENICLINE TARTRATE [Suspect]
     Dosage: 1 MG, EVERY 12 HOURS
     Route: 048
     Dates: start: 20120101
  4. ASPIRIN [Concomitant]
     Dosage: UNK
  5. VARENICLINE TARTRATE [Suspect]
     Dosage: 1 BLUE TABLET A DAY (1 MG/DAY)
     Route: 048
     Dates: start: 20120101, end: 20120101
  6. ATORVASTATIN CALCIUM [Concomitant]
     Indication: BLOOD CHOLESTEROL INCREASED
     Dosage: UNK
     Dates: start: 20100101

REACTIONS (17)
  - HYPOAESTHESIA [None]
  - ASPHYXIA [None]
  - MENTAL IMPAIRMENT [None]
  - CRYING [None]
  - HEADACHE [None]
  - FEELING ABNORMAL [None]
  - TREMOR [None]
  - MEDICATION ERROR [None]
  - FEELING OF DESPAIR [None]
  - HAEMORRHAGE [None]
  - DRUG DISPENSING ERROR [None]
  - AVERSION [None]
  - FEELING COLD [None]
  - CHILLS [None]
  - DEPRESSED MOOD [None]
  - DYSPHONIA [None]
  - POOR QUALITY SLEEP [None]
